FAERS Safety Report 13689305 (Version 1)
Quarter: 2017Q2

REPORT INFORMATION
  Report Type: Spontaneous
  Country: AL (occurrence: AL)
  Receive Date: 20170626
  Receipt Date: 20170626
  Transmission Date: 20170830
  Serious: Yes (Other)
  Sender: FDA-Public Use
  Company Number: AL-BAYER-2017-116716

PATIENT
  Age: 73 Year
  Sex: Male

DRUGS (1)
  1. ASPIRIN PROTECT 100 MG [Suspect]
     Active Substance: ASPIRIN
     Indication: ATRIAL FIBRILLATION

REACTIONS (4)
  - Transient ischaemic attack [None]
  - Aphasia [None]
  - Fall [None]
  - Asthenia [None]
